FAERS Safety Report 6807040-3 (Version None)
Quarter: 2010Q2

REPORT INFORMATION
  Report Type: 
  Country: None (occurrence: None)
  Receive Date: 20100629
  Receipt Date: 20080929
  Transmission Date: 20101027
  Serious: No
  Sender: FDA-Public Use
  Company Number: US-PFIZER INC-2008059724

PATIENT

DRUGS (1)
  1. ZYVOX [Suspect]
     Route: 042

REACTIONS (2)
  - PRODUCT QUALITY ISSUE [None]
  - SKIN LACERATION [None]
